FAERS Safety Report 4867614-6 (Version None)
Quarter: 2005Q4

REPORT INFORMATION
  Report Type: 
  Country: None (occurrence: None)
  Receive Date: 20051222
  Receipt Date: 20051212
  Transmission Date: 20060501
  Serious: Yes (Hospitalization)
  Sender: FDA-Public Use
  Company Number: 200512965BWH

PATIENT

DRUGS (1)
  1. AVELOX [Suspect]

REACTIONS (2)
  - CLOSTRIDIAL INFECTION [None]
  - GASTROINTESTINAL NECROSIS [None]
